FAERS Safety Report 18477288 (Version 1)
Quarter: 2020Q4

REPORT INFORMATION
  Report Type: Spontaneous
  Country: DE (occurrence: DE)
  Receive Date: 20201107
  Receipt Date: 20201107
  Transmission Date: 20210114
  Serious: Yes (Life-Threatening, Hospitalization, Other)
  Sender: FDA-Public Use
  Company Number: DE-TEVA-2020-DE-1845083

PATIENT
  Age: 83 Year
  Sex: Female
  Weight: 90 kg

DRUGS (1)
  1. METFORMIN [Suspect]
     Active Substance: METFORMIN HYDROCHLORIDE
     Indication: TYPE 2 DIABETES MELLITUS
     Dosage: 1700 MILLIGRAM DAILY; 2X 850 MG
     Route: 048
     Dates: start: 20190101, end: 20201019

REACTIONS (3)
  - Shock [Unknown]
  - Gastroenteritis [Unknown]
  - Lactic acidosis [Unknown]

NARRATIVE: CASE EVENT DATE: 202010
